FAERS Safety Report 8362604-3 (Version None)
Quarter: 2012Q2

REPORT INFORMATION
  Report Type: 
  Country: None (occurrence: None)
  Receive Date: 20120516
  Receipt Date: 20120510
  Transmission Date: 20120825
  Serious: No
  Sender: FDA-Public Use
  Company Number: US-PFIZER INC-2012114753

PATIENT
  Sex: Male
  Weight: 22.676 kg

DRUGS (1)
  1. CHILDREN'S ADVIL [Suspect]
     Indication: PYREXIA
     Dosage: 2 CUPS
     Dates: start: 20120101, end: 20120101

REACTIONS (1)
  - HALLUCINATION [None]
